FAERS Safety Report 19015841 (Version 14)
Quarter: 2022Q2

REPORT INFORMATION
  Report Type: Report from Study
  Country: CA (occurrence: CA)
  Receive Date: 20210316
  Receipt Date: 20220607
  Transmission Date: 20220721
  Serious: Yes (Hospitalization, Other)
  Sender: FDA-Public Use
  Company Number: PHHY2018CA068293

PATIENT
  Sex: Female

DRUGS (8)
  1. SANDOSTATIN LAR DEPOT [Suspect]
     Active Substance: OCTREOTIDE ACETATE
     Indication: Carcinoid tumour
     Dosage: 30 MG, QMO (EVERY 4 WEEKS)
     Route: 030
     Dates: start: 20180412
  2. SANDOSTATIN LAR DEPOT [Suspect]
     Active Substance: OCTREOTIDE ACETATE
  3. SANDOSTATIN LAR DEPOT [Suspect]
     Active Substance: OCTREOTIDE ACETATE
  4. MOXIFLOXACIN [Suspect]
     Active Substance: MOXIFLOXACIN
     Indication: Arthritis infective
     Dosage: 400 MG, QD (10 DAYS)
     Route: 065
  5. MOXIFLOXACIN [Suspect]
     Active Substance: MOXIFLOXACIN
     Indication: Post procedural infection
  6. CODEINE PHOSPHATE [Suspect]
     Active Substance: CODEINE PHOSPHATE
     Indication: Product used for unknown indication
     Dosage: UNK
     Route: 065
  7. AMOXICILLIN\CLAVULANIC ACID [Concomitant]
     Active Substance: AMOXICILLIN\CLAVULANIC ACID
     Indication: Arthritis infective
     Dosage: BID (10 DAYS)
     Route: 065
  8. AMOXICILLIN\CLAVULANIC ACID [Concomitant]
     Active Substance: AMOXICILLIN\CLAVULANIC ACID
     Indication: Post procedural infection

REACTIONS (24)
  - Cystitis [Unknown]
  - Cholelithiasis [Unknown]
  - Abdominal pain [Unknown]
  - Tumour rupture [Unknown]
  - Cataract [Unknown]
  - Glaucoma [Unknown]
  - Carcinoid tumour [Unknown]
  - Malignant neoplasm progression [Unknown]
  - Malaise [Unknown]
  - Blood glucose abnormal [Unknown]
  - Incision site haematoma [Unknown]
  - Infrequent bowel movements [Unknown]
  - Abnormal faeces [Unknown]
  - Hypotension [Unknown]
  - Flushing [Unknown]
  - Anxiety [Unknown]
  - Scar [Recovered/Resolved]
  - Tooth abscess [Unknown]
  - Parotitis [Unknown]
  - Lung neoplasm [Unknown]
  - Depressed mood [Unknown]
  - Diarrhoea [Unknown]
  - Nausea [Unknown]
  - Wrong technique in product usage process [Unknown]

NARRATIVE: CASE EVENT DATE: 20180101
